FAERS Safety Report 16121750 (Version 1)
Quarter: 2019Q1

REPORT INFORMATION
  Report Type: Spontaneous
  Country: US (occurrence: US)
  Receive Date: 20190222
  Receipt Date: 20190222
  Transmission Date: 20190418
  Serious: No
  Sender: FDA-Public Use
  Company Number: None

PATIENT
  Age: 18 Month
  Sex: Female

DRUGS (1)
  1. KALYDECO [Suspect]
     Active Substance: IVACAFTOR
     Indication: CYSTIC FIBROSIS
     Dates: start: 20190125

REACTIONS (3)
  - Culture throat positive [None]
  - Ear infection [None]
  - Pseudomonas infection [None]

NARRATIVE: CASE EVENT DATE: 20190222
